FAERS Safety Report 8570281-1 (Version None)
Quarter: 2012Q3

REPORT INFORMATION
  Report Type: 
  Country: None (occurrence: None)
  Receive Date: 20120803
  Receipt Date: 20120726
  Transmission Date: 20120928
  Serious: Yes (Hospitalization, Other)
  Sender: FDA-Public Use
  Company Number: CA-ABBOTT-12P-028-0909534-00

PATIENT
  Sex: Female
  Weight: 43.13 kg

DRUGS (7)
  1. FLAGYL [Concomitant]
     Indication: CROHN'S DISEASE
     Route: 048
  2. HUMIRA [Suspect]
     Route: 058
     Dates: start: 20120224
  3. HUMIRA [Suspect]
     Dates: start: 20120627
  4. HUMIRA [Suspect]
     Indication: CROHN'S DISEASE
     Route: 058
     Dates: start: 20100331, end: 20120726
  5. AMOXICILLIN AND CLAVULANATE POTASSIUM [Concomitant]
     Indication: CROHN'S DISEASE
     Route: 048
  6. UNKNOWN ANTIBIOTIC IV [Concomitant]
     Indication: PRODUCT USED FOR UNKNOWN INDICATION
     Dates: end: 20120601
  7. MEROPENEM [Concomitant]
     Indication: PROPHYLAXIS
     Route: 042

REACTIONS (12)
  - BODY TEMPERATURE INCREASED [None]
  - AXILLARY PAIN [None]
  - SENSORY DISTURBANCE [None]
  - WEIGHT ABNORMAL [None]
  - MALAISE [None]
  - PALLOR [None]
  - INFECTION [None]
  - FISTULA [None]
  - CHEST PAIN [None]
  - ASTHENIA [None]
  - HAEMOGLOBIN DECREASED [None]
  - PAIN [None]
